FAERS Safety Report 4586517-8 (Version None)
Quarter: 2005Q1

REPORT INFORMATION
  Report Type: 
  Country: None (occurrence: None)
  Receive Date: 20050217
  Receipt Date: 20050217
  Transmission Date: 20050727
  Serious: Yes (Other)
  Sender: FDA-Public Use
  Company Number: None

PATIENT
  Age: 80 Year
  Sex: Female

DRUGS (1)
  1. TYLENOL W/ CODEINE [Suspect]
     Indication: FIBROMYALGIA
     Dosage: 1 PO Q6H PRN PAIN
     Route: 048
     Dates: start: 20041001

REACTIONS (2)
  - DYSPNOEA [None]
  - HEADACHE [None]
